FAERS Safety Report 18869409 (Version 1)
Quarter: 2021Q1

REPORT INFORMATION
  Report Type: Other
  Country: CA (occurrence: CA)
  Receive Date: 20210210
  Receipt Date: 20210210
  Transmission Date: 20210420
  Serious: Yes (Other)
  Sender: FDA-Public Use
  Company Number: CA-APOTEX-2021AP002542

PATIENT
  Age: 35 Year
  Sex: Male

DRUGS (8)
  1. DUPILUMAB [Suspect]
     Active Substance: DUPILUMAB
     Indication: DERMATITIS ATOPIC
     Dosage: 300 MILLIGRAM 1 EVERY 2 WEEKS
     Route: 058
  2. DUPILUMAB [Suspect]
     Active Substance: DUPILUMAB
     Dosage: 600 MILLIGRAM, TOTAL
     Route: 058
  3. MOMETASONE FUROATE. [Concomitant]
     Active Substance: MOMETASONE FUROATE
     Indication: DERMATITIS ATOPIC
     Dosage: UNK, QD
     Route: 061
  4. HYDROCORTISONE. [Concomitant]
     Active Substance: HYDROCORTISONE
     Indication: DERMATITIS ATOPIC
     Dosage: UNK, QD
     Route: 061
  5. TIMOLOL. [Suspect]
     Active Substance: TIMOLOL
     Indication: INTRAOCULAR PRESSURE INCREASED
     Dosage: UNK
     Route: 065
  6. DIAMOX SEQUELS [Suspect]
     Active Substance: ACETAZOLAMIDE
     Indication: INTRAOCULAR PRESSURE INCREASED
     Dosage: UNK
     Route: 042
  7. PREDNISOLONE. [Concomitant]
     Active Substance: PREDNISOLONE
     Indication: HERPES SIMPLEX
     Dosage: UNK, 1 EVERY 4. 8 HOURS
     Route: 065
  8. VALTREX [Concomitant]
     Active Substance: VALACYCLOVIR HYDROCHLORIDE
     Indication: HERPES SIMPLEX
     Dosage: 500 MILLIGRAM, 1 EVEREY 8 HOUR
     Route: 065

REACTIONS (5)
  - Uveitis [Not Recovered/Not Resolved]
  - Heart rate decreased [Not Recovered/Not Resolved]
  - Intraocular pressure increased [Not Recovered/Not Resolved]
  - Blood pressure decreased [Not Recovered/Not Resolved]
  - Vision blurred [Not Recovered/Not Resolved]
